FAERS Safety Report 21782994 (Version 1)
Quarter: 2022Q4

REPORT INFORMATION
  Report Type: Spontaneous
  Country: US (occurrence: None)
  Receive Date: 20221224
  Receipt Date: 20221224
  Transmission Date: 20230112
  Serious: Yes (Disabling)
  Sender: FDA-Public Use
  Company Number: None

PATIENT
  Age: 36 Year
  Sex: Female
  Weight: 94.5 kg

DRUGS (6)
  1. RISPERIDONE [Suspect]
     Active Substance: RISPERIDONE
     Indication: Bipolar disorder
  2. BUSPIRONE [Suspect]
     Active Substance: BUSPIRONE HYDROCHLORIDE
     Indication: Anxiety
     Route: 048
  3. OLANZAPINE [Concomitant]
     Active Substance: OLANZAPINE
  4. DICLOFENAC SODIUM [Concomitant]
     Active Substance: DICLOFENAC SODIUM
  5. Once a day women^s multivitamin [Concomitant]
  6. biotin hair nail vitamins [Concomitant]

REACTIONS (47)
  - Breast enlargement [None]
  - Lactation puerperal increased [None]
  - Tremor [None]
  - Pain [None]
  - Muscular weakness [None]
  - Myalgia [None]
  - Hypoaesthesia [None]
  - Hypoaesthesia oral [None]
  - Weight increased [None]
  - Burning sensation [None]
  - Dyspepsia [None]
  - Bowel movement irregularity [None]
  - Loss of libido [None]
  - Alopecia [None]
  - Pain in extremity [None]
  - Pain in extremity [None]
  - Diplopia [None]
  - Headache [None]
  - Back pain [None]
  - Urine analysis abnormal [None]
  - Heavy menstrual bleeding [None]
  - Thrombosis [None]
  - Amenorrhoea [None]
  - Drooling [None]
  - Hyperhidrosis [None]
  - Dehydration [None]
  - Malaise [None]
  - Asthenia [None]
  - Fatigue [None]
  - Liver disorder [None]
  - Vulvovaginal dryness [None]
  - Vaginal discharge [None]
  - Bone pain [None]
  - Lethargy [None]
  - Feeling cold [None]
  - Musculoskeletal stiffness [None]
  - Muscular weakness [None]
  - Skin discolouration [None]
  - Tremor [None]
  - Thinking abnormal [None]
  - Feeling abnormal [None]
  - Peripheral swelling [None]
  - Joint swelling [None]
  - Vertigo [None]
  - Taste disorder [None]
  - Pruritus [None]
  - Hepatic steatosis [None]

NARRATIVE: CASE EVENT DATE: 20200502
